FAERS Safety Report 16174257 (Version 1)
Quarter: 2019Q2

REPORT INFORMATION
  Report Type: Spontaneous
  Country: FR (occurrence: FR)
  Receive Date: 20190409
  Receipt Date: 20190409
  Transmission Date: 20190711
  Serious: Yes (Other)
  Sender: FDA-Public Use
  Company Number: FR-BEH-2012031685

PATIENT
  Age: 21 Year
  Sex: Male
  Weight: 69.8 kg

DRUGS (2)
  1. ACLASTA [Concomitant]
     Active Substance: ZOLEDRONIC ACID
  2. PRIVIGEN [Suspect]
     Active Substance: HUMAN IMMUNOGLOBULIN G
     Indication: BRUTON^S AGAMMAGLOBULINAEMIA
     Route: 041
     Dates: start: 20120223, end: 20120223

REACTIONS (2)
  - Skin reaction [Unknown]
  - Urticaria [Recovered/Resolved]

NARRATIVE: CASE EVENT DATE: 20120223
